FAERS Safety Report 6387651-2 (Version None)
Quarter: 2009Q3

REPORT INFORMATION
  Report Type: 
  Country: None (occurrence: None)
  Receive Date: 20090930
  Receipt Date: 20090916
  Transmission Date: 20100115
  Serious: No
  Sender: FDA-Public Use
  Company Number: 8052170

PATIENT
  Age: 4 Year
  Sex: Male

DRUGS (2)
  1. KEPPRA [Suspect]
     Indication: CONVULSION
     Dosage: 1.5 DF PO
     Route: 048
  2. KEPPRA [Suspect]
     Indication: CONVULSION
     Dosage: 1.5 ML TWICE PO
     Route: 048
     Dates: start: 20090916

REACTIONS (2)
  - DRUG DISPENSING ERROR [None]
  - INCORRECT DOSE ADMINISTERED [None]
